FAERS Safety Report 7299897-X (Version None)
Quarter: 2011Q1

REPORT INFORMATION
  Report Type: 
  Country: None (occurrence: None)
  Receive Date: 20110217
  Receipt Date: 20110208
  Transmission Date: 20110831
  Serious: Yes (Hospitalization)
  Sender: FDA-Public Use
  Company Number: US-ASTRAZENECA-2011SE07780

PATIENT
  Age: 70 Year
  Sex: Female

DRUGS (4)
  1. VIMOVO [Suspect]
     Dosage: 500MG/20MG
     Route: 048
  2. NEXIUM [Suspect]
     Route: 048
  3. NAPROXEN [Concomitant]
  4. ZIAC [Concomitant]

REACTIONS (1)
  - ANAPHYLACTIC SHOCK [None]
